FAERS Safety Report 17123870 (Version 2)
Quarter: 2020Q2

REPORT INFORMATION
  Report Type: Spontaneous
  Country: US (occurrence: US)
  Receive Date: 20191206
  Receipt Date: 20200527
  Transmission Date: 20200713
  Serious: No
  Sender: FDA-Public Use
  Company Number: US-ROCHE-2366352

PATIENT
  Sex: Female
  Weight: 54.93 kg

DRUGS (7)
  1. OCREVUS [Suspect]
     Active Substance: OCRELIZUMAB
     Indication: PRIMARY PROGRESSIVE MULTIPLE SCLEROSIS
     Route: 042
     Dates: start: 201708
  2. VITAMIN D3 [Concomitant]
     Active Substance: CHOLECALCIFEROL
  3. BIOTIN [Concomitant]
     Active Substance: BIOTIN
  4. AMLODIPINE [Concomitant]
     Active Substance: AMLODIPINE BESYLATE
     Route: 065
  5. OCREVUS [Suspect]
     Active Substance: OCRELIZUMAB
     Route: 042
     Dates: start: 201802
  6. OLMESARTAN [Concomitant]
     Active Substance: OLMESARTAN
  7. AMPYRA [Concomitant]
     Active Substance: DALFAMPRIDINE

REACTIONS (13)
  - Gait disturbance [Unknown]
  - Hypertension [Unknown]
  - Swelling [Unknown]
  - Blood iron decreased [Unknown]
  - Pruritus [Unknown]
  - Monocyte count increased [Unknown]
  - Erythema [Unknown]
  - Balance disorder [Unknown]
  - Fatigue [Unknown]
  - Platelet count increased [Unknown]
  - Paraesthesia [Unknown]
  - Dizziness [Unknown]
  - Immunoglobulins decreased [Unknown]
